FAERS Safety Report 14199442 (Version 1)
Quarter: 2017Q4

REPORT INFORMATION
  Report Type: Spontaneous
  Country: US (occurrence: None)
  Receive Date: 20171116
  Receipt Date: 20171116
  Transmission Date: 20180321
  Serious: Yes (Death)
  Sender: FDA-Public Use
  Company Number: None

PATIENT
  Age: 64 Year
  Sex: Female

DRUGS (7)
  1. ATROVASTATIN [Concomitant]
     Active Substance: ATORVASTATIN CALCIUM
  2. OMPRAZOLE [Concomitant]
     Active Substance: OMEPRAZOLE
  3. PROCRIT [Suspect]
     Active Substance: ERYTHROPOIETIN
     Indication: END STAGE RENAL DISEASE
     Dosage: 4000
     Route: 058
     Dates: start: 20171026, end: 2017
  4. LEVOTHYROXIN [Concomitant]
     Active Substance: LEVOTHYROXINE
  5. CALCITRIOL. [Concomitant]
     Active Substance: CALCITRIOL
  6. METOPROLOL TARTRATE. [Concomitant]
     Active Substance: METOPROLOL TARTRATE
  7. LASIX [Concomitant]
     Active Substance: FUROSEMIDE

REACTIONS (1)
  - Death [None]
